FAERS Safety Report 11685599 (Version 1)
Quarter: 2015Q4

REPORT INFORMATION
  Report Type: Spontaneous
  Country: FR (occurrence: FR)
  Receive Date: 20151030
  Receipt Date: 20151030
  Transmission Date: 20160304
  Serious: Yes (Hospitalization, Other)
  Sender: FDA-Public Use
  Company Number: FR-BRISTOL-MYERS SQUIBB COMPANY-BMS-2015-072435

PATIENT
  Age: 71 Year
  Sex: Male

DRUGS (8)
  1. TAMOXIFENE [Concomitant]
     Active Substance: TAMOXIFEN
     Indication: PRODUCT USED FOR UNKNOWN INDICATION
     Dosage: UNK, QD
     Route: 065
  2. RAMIPRIL. [Concomitant]
     Active Substance: RAMIPRIL
     Indication: PRODUCT USED FOR UNKNOWN INDICATION
     Dosage: 10 MG, QD
     Route: 065
  3. COUMADINE [Suspect]
     Active Substance: WARFARIN SODIUM
     Dosage: UNK
     Route: 048
     Dates: end: 20150726
  4. PRAVASTATIN [Concomitant]
     Active Substance: PRAVASTATIN\PRAVASTATIN SODIUM
     Indication: PRODUCT USED FOR UNKNOWN INDICATION
     Dosage: UNK, QD
     Route: 065
  5. COUMADINE [Suspect]
     Active Substance: WARFARIN SODIUM
     Indication: EMBOLISM
     Dosage: UNK
     Route: 048
     Dates: end: 20150629
  6. COUMADINE [Suspect]
     Active Substance: WARFARIN SODIUM
     Dosage: 5 MG, UNK
     Route: 048
     Dates: start: 20150805
  7. WARFARIN [Concomitant]
     Active Substance: WARFARIN
     Indication: PRODUCT USED FOR UNKNOWN INDICATION
     Dosage: 4.5 MG, QD
     Route: 065
  8. ALLOPURINOL. [Concomitant]
     Active Substance: ALLOPURINOL
     Indication: PRODUCT USED FOR UNKNOWN INDICATION
     Dosage: UNK, QD
     Route: 065

REACTIONS (8)
  - International normalised ratio increased [Recovered/Resolved]
  - Angiodysplasia [Unknown]
  - Melaena [Recovered/Resolved]
  - Anaemia [Recovering/Resolving]
  - Overdose [Unknown]
  - Transfusion [Unknown]
  - Epistaxis [Recovered/Resolved]
  - Polyp [Unknown]

NARRATIVE: CASE EVENT DATE: 20150630
